FAERS Safety Report 4390835-6 (Version None)
Quarter: 2004Q3

REPORT INFORMATION
  Report Type: 
  Country: None (occurrence: None)
  Receive Date: 20040706
  Receipt Date: 20040706
  Transmission Date: 20050211
  Serious: Yes (Other)
  Sender: FDA-Public Use
  Company Number: None

PATIENT
  Age: 44 Year
  Sex: Male
  Weight: 68.0396 kg

DRUGS (4)
  1. PROPECIA [Suspect]
     Indication: ALOPECIA
     Dosage: 1X/DAY
     Dates: start: 20040301, end: 20040314
  2. PROPECIA [Suspect]
     Indication: ALOPECIA
     Dosage: 1X/DAY
     Dates: start: 20040701, end: 20040705
  3. AZULFIDINE [Concomitant]
  4. CHOLESTYRAMINE [Concomitant]

REACTIONS (4)
  - ABNORMAL FAECES [None]
  - GASTROINTESTINAL PAIN [None]
  - NAUSEA [None]
  - PHARMACEUTICAL PRODUCT COMPLAINT [None]
